FAERS Safety Report 13896432 (Version 2)
Quarter: 2017Q3

REPORT INFORMATION
  Report Type: Not Available
  Country: None (occurrence: US)
  Receive Date: 20170823
  Receipt Date: 20170823
  Transmission Date: 20171127
  Serious: No
  Sender: FDA-Public Use
  Company Number: US-AKORN- 48667

PATIENT
  Sex: Female

DRUGS (1)
  1. LACTULOSE SOLUTION, USP [Suspect]
     Active Substance: LACTULOSE

REACTIONS (1)
  - Drug ineffective [None]
